FAERS Safety Report 5287062-7 (Version None)
Quarter: 2007Q2

REPORT INFORMATION
  Report Type: 
  Country: None (occurrence: None)
  Receive Date: 20070404
  Receipt Date: 20070323
  Transmission Date: 20071010
  Serious: Yes (Other)
  Sender: FDA-Public Use
  Company Number: GB-PFIZER INC-2007025003

PATIENT
  Age: 60 Year
  Sex: Female
  Weight: 80 kg

DRUGS (3)
  1. ATORVASTATIN CALCIUM [Suspect]
     Indication: BLOOD CHOLESTEROL INCREASED
     Route: 048
     Dates: start: 20061116, end: 20070125
  2. PERINDOPRIL ERBUMINE [Concomitant]
     Route: 048
     Dates: start: 20040312
  3. BENDROFLUAZIDE [Concomitant]
     Route: 048

REACTIONS (1)
  - ONYCHOLYSIS [None]
